FAERS Safety Report 7351256-7 (Version None)
Quarter: 2011Q1

REPORT INFORMATION
  Report Type: 
  Country: None (occurrence: None)
  Receive Date: 20110314
  Receipt Date: 20110303
  Transmission Date: 20110831
  Serious: Yes (Hospitalization)
  Sender: FDA-Public Use
  Company Number: US-BAXTER-2011BH005250

PATIENT
  Age: 62 Year
  Sex: Male

DRUGS (3)
  1. EXTRANEAL [Suspect]
     Indication: PERITONEAL DIALYSIS
     Route: 033
     Dates: start: 20101006, end: 20100101
  2. DIANEAL [Suspect]
     Indication: PERITONEAL DIALYSIS
     Route: 033
  3. EXTRANEAL [Suspect]
     Route: 033
     Dates: start: 20110309

REACTIONS (5)
  - DRY SKIN [None]
  - CARDIAC DISORDER [None]
  - RASH GENERALISED [None]
  - RASH PRURITIC [None]
  - ERYTHEMA [None]
